FAERS Safety Report 23800970 (Version 1)
Quarter: 2024Q2

REPORT INFORMATION
  Report Type: Spontaneous
  Country: US (occurrence: US)
  Receive Date: 20240430
  Receipt Date: 20240430
  Transmission Date: 20240716
  Serious: No
  Sender: FDA-Public Use
  Company Number: US-009507513-2404USA011985

PATIENT
  Age: 78 Year
  Sex: Male

DRUGS (3)
  1. KEYTRUDA [Suspect]
     Active Substance: PEMBROLIZUMAB
     Indication: Lung cancer metastatic
     Route: 042
     Dates: start: 20240417
  2. PREDNISONE [Concomitant]
     Active Substance: PREDNISONE
     Indication: Inflammation
  3. MORPHINE [Concomitant]
     Active Substance: MORPHINE

REACTIONS (3)
  - Rash [Not Recovered/Not Resolved]
  - Arthralgia [Unknown]
  - Weight decreased [Unknown]

NARRATIVE: CASE EVENT DATE: 20240423
